FAERS Safety Report 5916309-6 (Version None)
Quarter: 2008Q4

REPORT INFORMATION
  Report Type: 
  Country: None (occurrence: None)
  Receive Date: 20081013
  Receipt Date: 20081006
  Transmission Date: 20090506
  Serious: Yes (Other)
  Sender: FDA-Public Use
  Company Number: PHHY2008DE14373

PATIENT
  Sex: Female

DRUGS (2)
  1. IMMUNOSPORIN [Suspect]
     Indication: DERMATITIS ATOPIC
     Dosage: 150 MG/DAY
     Route: 048
     Dates: end: 20080601
  2. IMMUNOSPORIN [Suspect]
     Dosage: 150 MG PER DAY
     Route: 048
     Dates: start: 20080901, end: 20080901

REACTIONS (6)
  - COORDINATION ABNORMAL [None]
  - FALL [None]
  - GAIT DISTURBANCE [None]
  - GENITAL RASH [None]
  - HYPERTENSION [None]
  - VIRAL INFECTION [None]
